FAERS Safety Report 11938146 (Version 1)
Quarter: 2016Q1

REPORT INFORMATION
  Report Type: Spontaneous
  Country: US (occurrence: US)
  Receive Date: 20160122
  Receipt Date: 20160122
  Transmission Date: 20160526
  Serious: No
  Sender: FDA-Public Use
  Company Number: US-BAYER-2016-011655

PATIENT
  Age: 75 Year
  Sex: Female
  Weight: 40.81 kg

DRUGS (1)
  1. MIRALAX [Suspect]
     Active Substance: POLYETHYLENE GLYCOL 3350
     Indication: CONSTIPATION
     Dosage: 1 DF, QD DAILY
     Route: 048
     Dates: start: 20160115, end: 20160119

REACTIONS (2)
  - Drug ineffective [None]
  - Faeces hard [None]

NARRATIVE: CASE EVENT DATE: 201601
